FAERS Safety Report 24878615 (Version 1)
Quarter: 2025Q1

REPORT INFORMATION
  Report Type: Report from Study
  Country: US (occurrence: US)
  Receive Date: 20250123
  Receipt Date: 20250123
  Transmission Date: 20250409
  Serious: Yes (Other)
  Sender: TAKEDA
  Company Number: US-TAKEDA-US202023311

PATIENT
  Sex: Female

DRUGS (2)
  1. HUMAN IMMUNOGLOBULIN G [Suspect]
     Active Substance: HUMAN IMMUNOGLOBULIN G
     Indication: Primary immunodeficiency syndrome
  2. HUMAN IMMUNOGLOBULIN G [Suspect]
     Active Substance: HUMAN IMMUNOGLOBULIN G
     Indication: Immunodeficiency common variable

REACTIONS (22)
  - Sjogren^s syndrome [Unknown]
  - Inability to afford medication [Recovered/Resolved]
  - Inappropriate schedule of product administration [Recovered/Resolved]
  - Incorrect drug administration rate [Unknown]
  - Influenza [Unknown]
  - Abdominal discomfort [Unknown]
  - Headache [Unknown]
  - Fatigue [Unknown]
  - Weight increased [Unknown]
  - Panic attack [Recovered/Resolved]
  - Poor venous access [Recovered/Resolved]
  - Foot fracture [Unknown]
  - Sensitivity to weather change [Unknown]
  - Weight decreased [Unknown]
  - Nasopharyngitis [Unknown]
  - Joint injury [Unknown]
  - Device infusion issue [Unknown]
  - Sinusitis [Unknown]
  - Balance disorder [Unknown]
  - Migraine [Unknown]
  - Malaise [Unknown]
  - Back pain [Unknown]
